FAERS Safety Report 11069757 (Version 1)
Quarter: 2015Q2

REPORT INFORMATION
  Report Type: Spontaneous
  Country: SE (occurrence: SE)
  Receive Date: 20150427
  Receipt Date: 20150427
  Transmission Date: 20150821
  Serious: Yes (Hospitalization)
  Sender: FDA-Public Use
  Company Number: SE-TEVA-556861ISR

PATIENT
  Age: 42 Year
  Sex: Male

DRUGS (5)
  1. HALDOL [Concomitant]
     Active Substance: HALOPERIDOL
  2. CONCERTA [Concomitant]
     Active Substance: METHYLPHENIDATE HYDROCHLORIDE
  3. ATARAX [Concomitant]
     Active Substance: HYDROXYZINE\HYDROXYZINE HYDROCHLORIDE
  4. SERTRALINE [Suspect]
     Active Substance: SERTRALINE HYDROCHLORIDE
  5. PROPAVAN [Concomitant]
     Active Substance: PROPIOMAZINE

REACTIONS (1)
  - Toxicity to various agents [Recovered/Resolved]
